FAERS Safety Report 5522333-8 (Version None)
Quarter: 2007Q4

REPORT INFORMATION
  Report Type: 
  Country: None (occurrence: None)
  Receive Date: 20071120
  Receipt Date: 20071113
  Transmission Date: 20080405
  Serious: Yes (Other)
  Sender: FDA-Public Use
  Company Number: GB-ELI_LILLY_AND_COMPANY-GB200711003188

PATIENT
  Sex: Male
  Weight: 95 kg

DRUGS (4)
  1. CIALIS [Suspect]
     Indication: ERECTILE DYSFUNCTION
     Dosage: 10 MG, AS NEEDED
     Route: 048
     Dates: start: 20070625, end: 20071023
  2. AMLODIPINE [Concomitant]
     Indication: HYPERTENSION
     Dosage: 5 MG, UNKNOWN
     Route: 048
     Dates: start: 20070625
  3. RAMIPRIL [Concomitant]
     Indication: HYPERTENSION
     Dosage: 10 MG, UNKNOWN
     Route: 048
     Dates: start: 20060703
  4. TOLTERODINE TARTRATE [Concomitant]
     Indication: URGE INCONTINENCE
     Dosage: 4 MG, UNKNOWN
     Route: 048
     Dates: start: 20021029

REACTIONS (3)
  - ARTHRALGIA [None]
  - MALAISE [None]
  - MYALGIA [None]
